FAERS Safety Report 6891860-3 (Version None)
Quarter: 2010Q3

REPORT INFORMATION
  Report Type: 
  Country: None (occurrence: None)
  Receive Date: 20100731
  Receipt Date: 20071120
  Transmission Date: 20110219
  Serious: No
  Sender: FDA-Public Use
  Company Number: US-PFIZER INC-2007097739

PATIENT
  Age: 87 Year
  Sex: Female

DRUGS (2)
  1. ANTIVERT [Suspect]
  2. DILACOR XR [Interacting]
     Indication: HEART RATE IRREGULAR

REACTIONS (7)
  - ASTHENIA [None]
  - BLOOD PRESSURE INCREASED [None]
  - DIZZINESS [None]
  - DRUG INTERACTION [None]
  - LABYRINTHITIS [None]
  - NAUSEA [None]
  - VERTIGO [None]
